FAERS Safety Report 17734680 (Version 1)
Quarter: 2020Q2

REPORT INFORMATION
  Report Type: Spontaneous
  Country: US (occurrence: US)
  Receive Date: 20200501
  Receipt Date: 20200501
  Transmission Date: 20200714
  Serious: No
  Sender: FDA-Public Use
  Company Number: US-HORIZON-PEN-0236-2020

PATIENT
  Age: 63 Year
  Sex: Male

DRUGS (1)
  1. PENNSAID [Suspect]
     Active Substance: DICLOFENAC SODIUM
     Indication: ARTHRALGIA
     Dosage: 2 PUMPS TWICE DAILY, ON AND OFF
     Dates: start: 2020

REACTIONS (2)
  - Intentional product use issue [Unknown]
  - Application site rash [Unknown]

NARRATIVE: CASE EVENT DATE: 2020
